FAERS Safety Report 18530863 (Version 2)
Quarter: 2021Q2

REPORT INFORMATION
  Report Type: Spontaneous
  Country: US (occurrence: US)
  Receive Date: 20201121
  Receipt Date: 20210407
  Transmission Date: 20210717
  Serious: Yes (Other)
  Sender: FDA-Public Use
  Company Number: US-ENDO PHARMACEUTICALS INC-2020-007396

PATIENT
  Sex: Female

DRUGS (6)
  1. PERCOCET [Suspect]
     Active Substance: ACETAMINOPHEN\OXYCODONE HYDROCHLORIDE
     Indication: MYOFASCIAL PAIN SYNDROME
     Dosage: 7.5 MG, UNKNOWN
     Route: 065
  2. OXYCONTIN [Suspect]
     Active Substance: OXYCODONE HYDROCHLORIDE
     Indication: BREAKTHROUGH PAIN
     Dosage: 20 MG, BID (MORNING AND EVENING)
     Route: 065
  3. PERCOCET [Suspect]
     Active Substance: ACETAMINOPHEN\OXYCODONE HYDROCHLORIDE
     Dosage: PRESCRIPTION WAS FOR 60, 10MG PILLS, PRN
     Route: 065
  4. PERCOCET [Suspect]
     Active Substance: ACETAMINOPHEN\OXYCODONE HYDROCHLORIDE
     Indication: BREAKTHROUGH PAIN
     Dosage: 10 MG, BID
     Route: 065
     Dates: start: 201308
  5. PERCOCET [Suspect]
     Active Substance: ACETAMINOPHEN\OXYCODONE HYDROCHLORIDE
     Dosage: 7.5 MG, EVERY 4?6 HRS AS NEEDED
     Route: 065
  6. OXYCONTIN [Suspect]
     Active Substance: OXYCODONE HYDROCHLORIDE
     Indication: MYOFASCIAL PAIN SYNDROME

REACTIONS (2)
  - Drug dependence [Recovering/Resolving]
  - Anxiety [Unknown]
